FAERS Safety Report 7459797-9 (Version None)
Quarter: 2011Q2

REPORT INFORMATION
  Report Type: 
  Country: None (occurrence: None)
  Receive Date: 20110505
  Receipt Date: 20110502
  Transmission Date: 20111010
  Serious: Yes (Hospitalization)
  Sender: FDA-Public Use
  Company Number: US-PFIZER INC-2011089663

PATIENT
  Sex: Female

DRUGS (27)
  1. ASTELIN [Concomitant]
  2. PATANOL [Concomitant]
  3. VIOXX [Suspect]
  4. QVAR 40 [Concomitant]
  5. XOPENEX [Concomitant]
  6. IBANDRONATE SODIUM [Concomitant]
  7. TOBI [Suspect]
     Dosage: 300 MG, 2X/DAY
     Route: 055
     Dates: start: 20010101
  8. BUTALBITAL AND CAFFEINE AND PARACETAMOL [Concomitant]
  9. DUONEB [Concomitant]
  10. ACIPHEX [Concomitant]
  11. IRON [Concomitant]
  12. CALCIUM [Concomitant]
  13. PROTONIX [Suspect]
     Dosage: UNK
  14. SKELAXIN [Suspect]
  15. VITAMIN C [Concomitant]
     Dosage: 1000 MG, UNK
  16. ALPHA LIPOIC ACID [Concomitant]
  17. SULFAMETHOXAZOLE [Suspect]
  18. ALBUTEROL [Concomitant]
  19. MISOPROSTOL [Concomitant]
  20. FLEXERIL [Concomitant]
  21. MAGNESIUM [Concomitant]
  22. NAPROXEN [Concomitant]
  23. VITAMIN D [Concomitant]
     Dosage: 2000 IU, UNK
  24. VITAMIN E [Concomitant]
     Dosage: 400 GY.
  25. ACIDOPHILUS ^ZYMA^ [Concomitant]
  26. THEOPHYLLINE [Concomitant]
  27. DIPHENHYDRAMINE [Concomitant]

REACTIONS (5)
  - GASTRIC ULCER [None]
  - MUSCLE SPASMS [None]
  - CEREBROVASCULAR ACCIDENT [None]
  - ANAEMIA [None]
  - NAUSEA [None]
